FAERS Safety Report 7659000-0 (Version None)
Quarter: 2011Q3

REPORT INFORMATION
  Report Type: 
  Country: None (occurrence: None)
  Receive Date: 20110805
  Receipt Date: 20110722
  Transmission Date: 20111222
  Serious: Yes (Hospitalization, Other)
  Sender: FDA-Public Use
  Company Number: US-ELI_LILLY_AND_COMPANY-US201108000135

PATIENT
  Sex: Female

DRUGS (10)
  1. SPIRIVA [Concomitant]
  2. PREDNISONE [Concomitant]
  3. PLAQUENIL [Concomitant]
  4. TRAMADOL HCL [Concomitant]
  5. ACCUPRIL [Concomitant]
  6. NORVASC [Concomitant]
  7. XOPENEX [Concomitant]
  8. FORTEO [Suspect]
     Indication: OSTEOPOROSIS
     Dosage: 20 UG, QD
  9. PLAVIX [Concomitant]
  10. PROZAC [Concomitant]

REACTIONS (5)
  - WEIGHT DECREASED [None]
  - INTRACRANIAL ANEURYSM [None]
  - BONE DENSITY DECREASED [None]
  - STENT PLACEMENT [None]
  - MALAISE [None]
